FAERS Safety Report 12964156 (Version 10)
Quarter: 2018Q1

REPORT INFORMATION
  Report Type: Report from Study
  Country: CA (occurrence: CA)
  Receive Date: 20161122
  Receipt Date: 20180312
  Transmission Date: 20180508
  Serious: Yes (Hospitalization, Other)
  Sender: FDA-Public Use
  Company Number: PHHY2016CA034937

PATIENT
  Age: 71 Year
  Sex: Female

DRUGS (2)
  1. SANDOSTATIN LAR DEPOT [Suspect]
     Active Substance: OCTREOTIDE ACETATE
     Dosage: 30 MG, QMO (ONCE A MONTH)
     Route: 030
     Dates: start: 20161115
  2. SANDOSTATIN LAR DEPOT [Suspect]
     Active Substance: OCTREOTIDE ACETATE
     Indication: CARCINOID TUMOUR
     Dosage: 20 MG, QMO (EVERY 4 WEEK)
     Route: 030
     Dates: start: 20160310, end: 20161019

REACTIONS (18)
  - Nausea [Not Recovered/Not Resolved]
  - Needle issue [Unknown]
  - Road traffic accident [Unknown]
  - Anaemia [Unknown]
  - Connective tissue inflammation [Recovering/Resolving]
  - Fatigue [Unknown]
  - Fractured sacrum [Unknown]
  - Bowel movement irregularity [Recovered/Resolved]
  - Faeces soft [Recovered/Resolved]
  - Abdominal distension [Unknown]
  - Hyperhidrosis [Unknown]
  - Flatulence [Unknown]
  - Hepatic mass [Unknown]
  - Blood pressure decreased [Unknown]
  - Arthralgia [Not Recovered/Not Resolved]
  - Abdominal pain [Recovered/Resolved]
  - Poor quality sleep [Unknown]
  - Feeling hot [Unknown]

NARRATIVE: CASE EVENT DATE: 20160310
